FAERS Safety Report 23977894 (Version 3)
Quarter: 2025Q1

REPORT INFORMATION
  Report Type: Spontaneous
  Country: US (occurrence: US)
  Receive Date: 20240614
  Receipt Date: 20250121
  Transmission Date: 20250409
  Serious: Yes (Hospitalization)
  Sender: SUNOVION
  Company Number: US-MYOVANT SCIENCES GMBH-2024MYSCI0600275

PATIENT

DRUGS (28)
  1. ORGOVYX [Suspect]
     Active Substance: RELUGOLIX
     Indication: Prostate cancer
     Dosage: 360 MILLIGRAM, ONE TIME DOSE
     Route: 048
     Dates: start: 20230724, end: 20230724
  2. ORGOVYX [Suspect]
     Active Substance: RELUGOLIX
     Dosage: 120 MILLIGRAM, QD
     Route: 048
     Dates: start: 20230725
  3. TYLENOL WITH CODEINE [Concomitant]
     Active Substance: ACETAMINOPHEN\CODEINE PHOSPHATE
     Indication: Product used for unknown indication
     Route: 065
  4. ALBUTEROL SULFATE [Concomitant]
     Active Substance: ALBUTEROL SULFATE
     Indication: Product used for unknown indication
     Route: 065
  5. ALBUTEROL SULFATE [Concomitant]
     Active Substance: ALBUTEROL SULFATE
     Indication: Product used for unknown indication
     Route: 065
  6. ALBUTEROL\IPRATROPIUM [Concomitant]
     Active Substance: ALBUTEROL\IPRATROPIUM
     Indication: Product used for unknown indication
     Route: 065
  7. AMLODIPINE BESYLATE AND VALSARTAN [Concomitant]
     Active Substance: AMLODIPINE BESYLATE\VALSARTAN
     Indication: Product used for unknown indication
     Route: 065
  8. ASPIRIN [Concomitant]
     Active Substance: ASPIRIN
     Indication: Product used for unknown indication
     Route: 065
  9. TESSALON [Concomitant]
     Active Substance: BENZONATATE
     Indication: Product used for unknown indication
     Route: 065
  10. SOMA [Concomitant]
     Active Substance: CARISOPRODOL
     Indication: Product used for unknown indication
     Route: 065
  11. LOTRIMIN AF                        /00212501/ [Concomitant]
     Indication: Product used for unknown indication
     Route: 065
  12. ROBITUSSIN                         /00048001/ [Concomitant]
     Indication: Product used for unknown indication
     Route: 065
  13. BENADRYL [Concomitant]
     Active Substance: DIPHENHYDRAMINE HYDROCHLORIDE
     Indication: Product used for unknown indication
     Route: 065
  14. COLACE [Concomitant]
     Active Substance: DOCUSATE SODIUM
     Indication: Product used for unknown indication
     Route: 065
  15. MOMETASONE FUROATE [Concomitant]
     Active Substance: MOMETASONE FUROATE
     Indication: Product used for unknown indication
     Route: 065
  16. GABAPENTIN [Concomitant]
     Active Substance: GABAPENTIN
     Indication: Product used for unknown indication
     Route: 065
  17. KETOCONAZOLE [Concomitant]
     Active Substance: KETOCONAZOLE
     Indication: Product used for unknown indication
     Route: 065
  18. LEVAQUIN [Concomitant]
     Active Substance: LEVOFLOXACIN
     Indication: Product used for unknown indication
     Route: 065
  19. MAGNESIUM CITRATE [Concomitant]
     Active Substance: MAGNESIUM CITRATE
     Indication: Product used for unknown indication
     Route: 065
  20. MILK OF MAGNESIA [Concomitant]
     Active Substance: MAGNESIUM HYDROXIDE
     Indication: Product used for unknown indication
     Route: 065
  21. MONTELUKAST SODIUM [Concomitant]
     Active Substance: MONTELUKAST SODIUM
     Indication: Product used for unknown indication
     Route: 065
  22. RELISTOR [Concomitant]
     Active Substance: METHYLNALTREXONE BROMIDE
     Indication: Product used for unknown indication
     Route: 065
  23. METHADONE [Concomitant]
     Active Substance: METHADONE HYDROCHLORIDE
     Indication: Product used for unknown indication
     Route: 065
  24. MELATONIN [Concomitant]
     Active Substance: MELATONIN
     Indication: Product used for unknown indication
     Route: 065
  25. MUPIROCIN [Concomitant]
     Active Substance: MUPIROCIN
     Indication: Product used for unknown indication
     Route: 065
  26. CLINDAMICIN                        /00166002/ [Concomitant]
     Indication: Product used for unknown indication
     Route: 065
  27. DIPHENHYDRAMINE [Concomitant]
     Active Substance: DIPHENHYDRAMINE
     Indication: Product used for unknown indication
     Route: 065
  28. LORAZEPAM [Concomitant]
     Active Substance: LORAZEPAM
     Indication: Product used for unknown indication
     Route: 065

REACTIONS (4)
  - Pyrexia [Unknown]
  - Oropharyngeal pain [Unknown]
  - Pain [Unknown]
  - Groin pain [Unknown]
